FAERS Safety Report 6178237-3 (Version None)
Quarter: 2009Q2

REPORT INFORMATION
  Report Type: 
  Country: None (occurrence: None)
  Receive Date: 20090504
  Receipt Date: 20090424
  Transmission Date: 20091009
  Serious: Yes (Hospitalization)
  Sender: FDA-Public Use
  Company Number: A0763855A

PATIENT
  Age: 63 Year
  Sex: Male
  Weight: 95.5 kg

DRUGS (7)
  1. AVANDIA [Suspect]
     Dosage: 4MG PER DAY
     Route: 048
     Dates: start: 20020812, end: 20080101
  2. LOPRESSOR [Concomitant]
  3. LISINOPRIL [Concomitant]
  4. ZOCOR [Concomitant]
  5. PLAVIX [Concomitant]
  6. TRICOR [Concomitant]
  7. LIPITOR [Concomitant]

REACTIONS (5)
  - CARDIAC DISORDER [None]
  - CHEST DISCOMFORT [None]
  - EMOTIONAL DISTRESS [None]
  - MYOCARDIAL INFARCTION [None]
  - MYOCARDIAL ISCHAEMIA [None]
